FAERS Safety Report 7759137-1 (Version None)
Quarter: 2011Q3

REPORT INFORMATION
  Report Type: 
  Country: None (occurrence: None)
  Receive Date: 20110919
  Receipt Date: 20110914
  Transmission Date: 20111222
  Serious: Yes (Other)
  Sender: FDA-Public Use
  Company Number: PHHY2011AU76266

PATIENT
  Sex: Female

DRUGS (6)
  1. EXJADE [Suspect]
     Indication: IRON OVERLOAD
     Dosage: 500 MG, DAILY
     Route: 048
     Dates: start: 20100701
  2. FELODIPINE [Concomitant]
     Indication: HYPERTENSION
     Dosage: 300 MG, DAILY
     Route: 048
     Dates: start: 19910101
  3. KARVEA [Concomitant]
     Indication: HYPERTENSION
     Dosage: 300 MG, DAILY
     Dates: start: 19910101
  4. ALDACTONE [Concomitant]
     Indication: HYPERTENSION
     Dosage: 25 MG, UNK
     Route: 048
     Dates: start: 19910101
  5. MINAX [Concomitant]
     Indication: HYPERTENSION
     Dosage: 120 MG, DAILY
     Route: 048
     Dates: start: 20010101
  6. ALLOPURINOL [Concomitant]
     Indication: GOUT
     Dosage: 100 MG, DAILY
     Route: 048
     Dates: start: 20010101

REACTIONS (5)
  - BLOOD VISCOSITY INCREASED [None]
  - TRANSIENT ISCHAEMIC ATTACK [None]
  - BLOOD IRON INCREASED [None]
  - SPEECH DISORDER [None]
  - DISORIENTATION [None]
